FAERS Safety Report 10271630 (Version 3)
Quarter: 2014Q4

REPORT INFORMATION
  Report Type: Report from Study
  Country: US (occurrence: US)
  Receive Date: 20140701
  Receipt Date: 20141021
  Transmission Date: 20150528
  Serious: Yes (Hospitalization, Other)
  Sender: FDA-Public Use
  Company Number: US-ABBVIE-14P-163-1237903-00

PATIENT
  Age: 43 Year
  Sex: Female
  Weight: 78.09 kg

DRUGS (24)
  1. ABILIFY [Concomitant]
     Active Substance: ARIPIPRAZOLE
     Indication: PRODUCT USED FOR UNKNOWN INDICATION
  2. DEPAKOTE [Concomitant]
     Active Substance: DIVALPROEX SODIUM
     Indication: PRODUCT USED FOR UNKNOWN INDICATION
     Dosage: 2 TABS QHS
  3. DEPAKOTE [Concomitant]
     Active Substance: DIVALPROEX SODIUM
     Dosage: INCREASED
  4. THIORIDAZINE [Concomitant]
     Active Substance: THIORIDAZINE
     Indication: BIPOLAR DISORDER
     Dosage: NIGHTLY
  5. DEPO-PROVERA [Concomitant]
     Active Substance: MEDROXYPROGESTERONE ACETATE
     Indication: CONTRACEPTION
     Dosage: QUARTERLY
  6. HUMIRA [Suspect]
     Active Substance: ADALIMUMAB
     Indication: CROHN^S DISEASE
     Dosage: LOADING DOSE
     Route: 065
  7. NORCO [Suspect]
     Active Substance: ACETAMINOPHEN\HYDROCODONE BITARTRATE
     Indication: PAIN
     Route: 065
  8. NORCO [Suspect]
     Active Substance: ACETAMINOPHEN\HYDROCODONE BITARTRATE
     Indication: BACK PAIN
  9. TYLENOL WITH CODEINE NO.4 [Concomitant]
     Indication: PRODUCT USED FOR UNKNOWN INDICATION
  10. CLONAZEPAM. [Concomitant]
     Active Substance: CLONAZEPAM
     Indication: PRODUCT USED FOR UNKNOWN INDICATION
  11. OSTRACAL [Concomitant]
     Indication: PRODUCT USED FOR UNKNOWN INDICATION
  12. CHOLESTYRAMINE POWDER [Concomitant]
     Indication: PRODUCT USED FOR UNKNOWN INDICATION
  13. NORCO [Suspect]
     Active Substance: ACETAMINOPHEN\HYDROCODONE BITARTRATE
     Indication: HERPES ZOSTER
  14. LOMOTIL [Concomitant]
     Active Substance: ATROPINE SULFATE\DIPHENOXYLATE HYDROCHLORIDE
     Indication: CROHN^S DISEASE
  15. MULTIVITAMIN [Concomitant]
     Active Substance: VITAMINS
     Indication: PRODUCT USED FOR UNKNOWN INDICATION
  16. XANAX [Suspect]
     Active Substance: ALPRAZOLAM
     Indication: ANXIETY
     Route: 065
  17. ACETAMINOPHEN AND CODEINE [Concomitant]
     Active Substance: ACETAMINOPHEN\CODEINE PHOSPHATE
     Indication: PRODUCT USED FOR UNKNOWN INDICATION
     Dosage: 300/60 MG
  18. HUMIRA [Suspect]
     Active Substance: ADALIMUMAB
     Route: 065
  19. BACLOFEN. [Concomitant]
     Active Substance: BACLOFEN
     Indication: PRODUCT USED FOR UNKNOWN INDICATION
  20. THIORIDAZINE [Concomitant]
     Active Substance: THIORIDAZINE
     Indication: SEASONAL AFFECTIVE DISORDER
     Dosage: INCREASED DOSE
  21. VITAMIN B1 [Concomitant]
     Active Substance: THIAMINE HYDROCHLORIDE
     Indication: PRODUCT USED FOR UNKNOWN INDICATION
  22. ATROPINE SULFATE W/DIPHENOXYLATE HYDROCHLOR. [Concomitant]
     Indication: PRODUCT USED FOR UNKNOWN INDICATION
  23. FOLIC ACID. [Concomitant]
     Active Substance: FOLIC ACID
     Indication: PRODUCT USED FOR UNKNOWN INDICATION
  24. VITAMIN D3 [Concomitant]
     Active Substance: CHOLECALCIFEROL
     Indication: PRODUCT USED FOR UNKNOWN INDICATION

REACTIONS (17)
  - Mental disorder [Not Recovered/Not Resolved]
  - Papilloma viral infection [Unknown]
  - Influenza [Recovered/Resolved]
  - Foot fracture [Unknown]
  - Scar [Unknown]
  - Wrong drug administered [Unknown]
  - Nasal septum deviation [Unknown]
  - Inappropriate schedule of drug administration [Recovered/Resolved]
  - Furuncle [Not Recovered/Not Resolved]
  - Herpes zoster [Recovered/Resolved]
  - Staphylococcal infection [Unknown]
  - Rash [Unknown]
  - Anxiety [Not Recovered/Not Resolved]
  - Skin wound [Unknown]
  - Furuncle [Not Recovered/Not Resolved]
  - Nasal disorder [Not Recovered/Not Resolved]
  - Pruritus [Unknown]

NARRATIVE: CASE EVENT DATE: 2011
